FAERS Safety Report 4317255-4 (Version None)
Quarter: 2004Q1

REPORT INFORMATION
  Report Type: 
  Country: None (occurrence: None)
  Receive Date: 20040312
  Receipt Date: 20040227
  Transmission Date: 20041129
  Serious: Yes (Life-Threatening, Hospitalization, Other)
  Sender: FDA-Public Use
  Company Number: 2003114955

PATIENT
  Age: 67 Year
  Sex: Male
  Weight: 63 kg

DRUGS (2)
  1. NORVASC [Suspect]
     Indication: HYPERTENSION
     Dosage: 2.5 MG (DAILY), ORAL
     Route: 048
     Dates: start: 20011129, end: 20031101
  2. TICLOPIDINE HCL [Concomitant]

REACTIONS (6)
  - ATRIOVENTRICULAR BLOCK COMPLETE [None]
  - DIZZINESS [None]
  - FALL [None]
  - HEART RATE DECREASED [None]
  - LOSS OF CONSCIOUSNESS [None]
  - SYNCOPE [None]
